FAERS Safety Report 10686705 (Version 1)
Quarter: 2015Q1

REPORT INFORMATION
  Report Type: Spontaneous
  Country: US (occurrence: US)
  Receive Date: 20150101
  Receipt Date: 20150101
  Transmission Date: 20150720
  Serious: Yes (Other)
  Sender: FDA-Public Use
  Company Number: US-GLAXOSMITHKLINE-US2014GSK044557

PATIENT
  Sex: Female

DRUGS (1)
  1. ADVAIR DISKUS [Suspect]
     Active Substance: FLUTICASONE PROPIONATE\SALMETEROL XINAFOATE
     Indication: RESPIRATORY DISORDER
     Dosage: UNK, U
     Dates: start: 2011

REACTIONS (4)
  - Tracheostomy [Unknown]
  - Coma [Unknown]
  - Neoplasm malignant [Unknown]
  - Respiratory failure [Unknown]

NARRATIVE: CASE EVENT DATE: 2011
